FAERS Safety Report 17751175 (Version 4)
Quarter: 2020Q2

REPORT INFORMATION
  Report Type: Spontaneous
  Country: US (occurrence: US)
  Receive Date: 20200506
  Receipt Date: 20200603
  Transmission Date: 20200714
  Serious: Yes (Hospitalization, Other)
  Sender: FDA-Public Use
  Company Number: US-GLAXOSMITHKLINE-US2020075018

PATIENT
  Age: 68 Year
  Sex: Female

DRUGS (1)
  1. TRELEGY ELLIPTA [Suspect]
     Active Substance: FLUTICASONE FUROATE\UMECLIDINIUM BROMIDE\VILANTEROL TRIFENATATE
     Indication: PRODUCT USED FOR UNKNOWN INDICATION
     Dosage: 1 DF, 1D 100/62.5/25 MCG
     Route: 065
     Dates: start: 2017

REACTIONS (11)
  - Incorrect dose administered [Unknown]
  - Concussion [Unknown]
  - Wrong technique in device usage process [Unknown]
  - Respiratory failure [Unknown]
  - Dyspnoea [Unknown]
  - Peripheral swelling [Unknown]
  - Road traffic accident [Unknown]
  - Drug ineffective [Unknown]
  - Cardiac failure chronic [Unknown]
  - Product complaint [Unknown]
  - Vision blurred [Not Recovered/Not Resolved]

NARRATIVE: CASE EVENT DATE: 20200501
